FAERS Safety Report 20542901 (Version 1)
Quarter: 2022Q1

REPORT INFORMATION
  Report Type: Report from Study
  Country: BR (occurrence: BR)
  Receive Date: 20220302
  Receipt Date: 20220302
  Transmission Date: 20220423
  Serious: Yes (Other)
  Sender: FDA-Public Use
  Company Number: BR-NOVARTISPH-NVSC2022BR044390

PATIENT
  Sex: Female

DRUGS (4)
  1. COSENTYX [Suspect]
     Active Substance: SECUKINUMAB
     Indication: Psoriasis
     Dosage: 300 MG
     Route: 065
     Dates: start: 20211018
  2. COSENTYX [Suspect]
     Active Substance: SECUKINUMAB
     Dosage: 300 MG
     Route: 065
     Dates: start: 20220207
  3. PURAN [Concomitant]
     Active Substance: LEVOTHYROXINE SODIUM
     Indication: Hypothyroidism
     Dosage: 35 MG
     Route: 065
  4. PURAN [Concomitant]
     Active Substance: LEVOTHYROXINE SODIUM
     Dosage: 50 MG
     Route: 065

REACTIONS (9)
  - Opportunistic infection [Unknown]
  - Genital herpes [Recovered/Resolved]
  - Sinusitis [Recovered/Resolved]
  - COVID-19 [Unknown]
  - Diarrhoea [Unknown]
  - Sinonasal obstruction [Unknown]
  - Thyroid disorder [Unknown]
  - Nasal septum deviation [Unknown]
  - Onychomycosis [Recovering/Resolving]

NARRATIVE: CASE EVENT DATE: 20210101
